FAERS Safety Report 9685296 (Version 1)
Quarter: 2013Q4

REPORT INFORMATION
  Report Type: Spontaneous
  Country: US (occurrence: US)
  Receive Date: 20131113
  Receipt Date: 20131113
  Transmission Date: 20140711
  Serious: Yes (Other)
  Sender: FDA-Public Use
  Company Number: US-JNJFOC-20131102636

PATIENT
  Sex: Female
  Weight: 58.97 kg

DRUGS (5)
  1. INVEGA [Suspect]
     Indication: SCHIZOAFFECTIVE DISORDER BIPOLAR TYPE
     Route: 048
     Dates: start: 2013
  2. INVEGA [Suspect]
     Indication: SCHIZOAFFECTIVE DISORDER BIPOLAR TYPE
     Route: 048
     Dates: start: 2002, end: 2013
  3. HALDOL [Concomitant]
     Indication: DRUG THERAPY
     Route: 030
     Dates: start: 2003
  4. COGENTIN [Concomitant]
     Indication: ADVERSE DRUG REACTION
     Route: 048
     Dates: start: 2003
  5. CELEXA [Concomitant]
     Indication: DRUG THERAPY
     Route: 048
     Dates: start: 2003

REACTIONS (4)
  - Catatonia [Not Recovered/Not Resolved]
  - Memory impairment [Not Recovered/Not Resolved]
  - Dissociation [Not Recovered/Not Resolved]
  - Adverse event [Unknown]
